FAERS Safety Report 5868066-X (Version None)
Quarter: 2008Q3

REPORT INFORMATION
  Report Type: 
  Country: None (occurrence: None)
  Receive Date: 20080902
  Receipt Date: 20080306
  Transmission Date: 20090109
  Serious: No
  Sender: FDA-Public Use
  Company Number: US-ABBOTT-08P-163-0441416-00

PATIENT
  Sex: Male
  Weight: 79.45 kg

DRUGS (3)
  1. DEPAKOTE ER [Suspect]
     Indication: ANXIETY DISORDER DUE TO A GENERAL MEDICAL CONDITION
     Route: 048
     Dates: start: 20071001, end: 20080101
  2. DEPAKOTE ER [Suspect]
     Route: 048
  3. DEPAKOTE ER [Suspect]
     Route: 048

REACTIONS (5)
  - ANOREXIA [None]
  - ASTHENIA [None]
  - DEHYDRATION [None]
  - DRUG INEFFECTIVE [None]
  - IRRITABILITY [None]
